FAERS Safety Report 16540412 (Version 1)
Quarter: 2019Q3

REPORT INFORMATION
  Report Type: Spontaneous
  Country: DE (occurrence: DE)
  Receive Date: 20190708
  Receipt Date: 20190708
  Transmission Date: 20191004
  Serious: Yes (Hospitalization)
  Sender: FDA-Public Use
  Company Number: DE-ASTRAZENECA-2019SE95627

PATIENT
  Age: 58 Year
  Sex: Female
  Weight: 63 kg

DRUGS (9)
  1. SPIRIVA [Concomitant]
     Active Substance: TIOTROPIUM BROMIDE MONOHYDRATE
     Dosage: 2-0-0-0, DOSIERAEROSOL
  2. PANTOPRAZOL [Concomitant]
     Active Substance: PANTOPRAZOLE SODIUM
     Dosage: 40 MG, 0-0-1-0
  3. RAMIPRIL. [Concomitant]
     Active Substance: RAMIPRIL
     Dosage: 5 MG, 0.5-0-0-0
  4. FOSTER [Concomitant]
     Active Substance: BECLOMETHASONE\FORMOTEROL
     Dosage: 2-0-1-0, DOSIERAEROSOL
  5. CYMBALTA [Concomitant]
     Active Substance: DULOXETINE HYDROCHLORIDE
     Dosage: 60 MG, 0-0-1-0
  6. ZOMETA [Concomitant]
     Active Substance: ZOLEDRONIC ACID
     Dosage: 4 MG/5ML, ALLE 4 WOCHEN
  7. LEVOTHYROXINE SODIUM. [Concomitant]
     Active Substance: LEVOTHYROXINE SODIUM
     Dosage: 75 ???G, 1-0-0-0
  8. SALBUTAMOL [Concomitant]
     Active Substance: ALBUTEROL
     Dosage: BEDARF 2 HUB
  9. FULVESTRANT. [Suspect]
     Active Substance: FULVESTRANT
     Dosage: 2 SPRITZEN ALLE 4 WOCHEN
     Route: 030

REACTIONS (2)
  - Pulmonary embolism [Unknown]
  - Dyspnoea exertional [Unknown]
